FAERS Safety Report 7810820-9 (Version None)
Quarter: 2011Q4

REPORT INFORMATION
  Report Type: 
  Country: None (occurrence: None)
  Receive Date: 20111011
  Receipt Date: 20110926
  Transmission Date: 20120403
  Serious: Yes (Hospitalization, Other)
  Sender: FDA-Public Use
  Company Number: 1000023231

PATIENT
  Age: 36 Year
  Sex: Female
  Weight: 61 kg

DRUGS (4)
  1. HUMAN PROTAPHANE (INSULIN HUMAN INJECTION, ISOPHANE) (INJECTION) (INSU [Concomitant]
  2. CERVIDIL [Suspect]
     Indication: LABOUR INDUCTION
     Dosage: 10 MG, ONCE, VAGINAL
     Route: 067
     Dates: start: 20110811, end: 20110811
  3. NOVOLOG [Concomitant]
  4. FEFOL (FOLIC ACID) [Concomitant]

REACTIONS (9)
  - BRADYCARDIA FOETAL [None]
  - MATERNAL EXPOSURE DURING PREGNANCY [None]
  - ABDOMINAL DISCOMFORT [None]
  - HYPERTENSION [None]
  - GASTROINTESTINAL PAIN [None]
  - FOETAL DISTRESS SYNDROME [None]
  - DEFAECATION URGENCY [None]
  - UTERINE HYPERTONUS [None]
  - CAESAREAN SECTION [None]
